FAERS Safety Report 10309040 (Version 2)
Quarter: 2014Q4

REPORT INFORMATION
  Report Type: Spontaneous
  Country: US (occurrence: None)
  Receive Date: 20140714
  Receipt Date: 20141216
  Transmission Date: 20150528
  Serious: Yes (Other)
  Sender: FDA-Public Use
  Company Number: 2014-US-008349

PATIENT
  Sex: Male

DRUGS (1)
  1. XYREM [Suspect]
     Active Substance: SODIUM OXYBATE
     Indication: PRODUCT USED FOR UNKNOWN INDICATION
     Dosage: UNKNOWN DOSE
     Route: 048

REACTIONS (2)
  - Seizure like phenomena [None]
  - Intentional overdose [None]
